FAERS Safety Report 6851148-3 (Version None)
Quarter: 2010Q3

REPORT INFORMATION
  Report Type: 
  Country: None (occurrence: None)
  Receive Date: 20100716
  Receipt Date: 20080103
  Transmission Date: 20110219
  Serious: No
  Sender: FDA-Public Use
  Company Number: US-PFIZER INC-2007091617

PATIENT
  Sex: Male
  Weight: 109.1 kg

DRUGS (3)
  1. CHANTIX [Suspect]
     Indication: SMOKING CESSATION THERAPY
     Route: 048
     Dates: start: 20071001, end: 20071001
  2. TAMSULOSIN HYDROCHLORIDE [Concomitant]
  3. GLIMEPIRIDE [Concomitant]
     Indication: BLOOD GLUCOSE INCREASED

REACTIONS (5)
  - AGITATION [None]
  - INSOMNIA [None]
  - IRRITABILITY [None]
  - MOOD SWINGS [None]
  - NIGHTMARE [None]
